FAERS Safety Report 6898245-4 (Version None)
Quarter: 2010Q3

REPORT INFORMATION
  Report Type: 
  Country: None (occurrence: None)
  Receive Date: 20100802
  Receipt Date: 20070924
  Transmission Date: 20110219
  Serious: Yes (Other)
  Sender: FDA-Public Use
  Company Number: US-PFIZER INC-2007078400

PATIENT
  Sex: Male
  Weight: 122.5 kg

DRUGS (3)
  1. LYRICA [Suspect]
     Indication: DIABETIC NEUROPATHY
     Dates: start: 20060101
  2. TAMSULOSIN HCL [Concomitant]
  3. UROXATRAL [Concomitant]

REACTIONS (6)
  - BURNING SENSATION [None]
  - DRUG INEFFECTIVE [None]
  - FEELING ABNORMAL [None]
  - PEAU D'ORANGE [None]
  - SWELLING [None]
  - WEIGHT INCREASED [None]
